FAERS Safety Report 9795356 (Version 1)
Quarter: 2014Q1

REPORT INFORMATION
  Report Type: Report from Study
  Country: US (occurrence: US)
  Receive Date: 20140103
  Receipt Date: 20140103
  Transmission Date: 20141002
  Serious: Yes (Death)
  Sender: FDA-Public Use
  Company Number: US-ROCHE-1320689

PATIENT
  Sex: Female

DRUGS (5)
  1. AVASTIN [Suspect]
     Indication: COLON CANCER STAGE IV
     Route: 065
     Dates: start: 20111216
  2. LEUCOVORIN [Concomitant]
  3. FLUOROURACIL [Concomitant]
  4. OXALIPLATIN [Concomitant]
  5. LEUCOVORIN [Concomitant]

REACTIONS (1)
  - Death [Fatal]
